FAERS Safety Report 16893945 (Version 1)
Quarter: 2019Q4

REPORT INFORMATION
  Report Type: Spontaneous
  Country: US (occurrence: US)
  Receive Date: 20191008
  Receipt Date: 20191008
  Transmission Date: 20200122
  Serious: Yes (Hospitalization)
  Sender: FDA-Public Use
  Company Number: US-AMNEAL PHARMACEUTICALS-2019-AMRX-01874

PATIENT
  Age: 76 Year
  Sex: Female

DRUGS (1)
  1. RYTARY [Suspect]
     Active Substance: CARBIDOPA\LEVODOPA
     Indication: PARKINSON^S DISEASE
     Dosage: UNK, 3 CAPSULES ALTERNATING WITH 2 CAPSULES 4 TIMES DAILY
     Route: 048
     Dates: end: 20190908

REACTIONS (4)
  - Staring [Unknown]
  - Disturbance in attention [Unknown]
  - Parkinson^s disease [Unknown]
  - Therapy cessation [Unknown]

NARRATIVE: CASE EVENT DATE: 20190908
